FAERS Safety Report 17127668 (Version 1)
Quarter: 2019Q4

REPORT INFORMATION
  Report Type: Spontaneous
  Country: US (occurrence: US)
  Receive Date: 20191209
  Receipt Date: 20191209
  Transmission Date: 20200122
  Serious: Yes (Other)
  Sender: FDA-Public Use
  Company Number: US-GILEAD-2019-0440961

PATIENT
  Sex: Female

DRUGS (1)
  1. COMPLERA [Suspect]
     Active Substance: EMTRICITABINE\RILPIVIRINE HYDROCHLORIDE\TENOFOVIR DISOPROXIL FUMARATE
     Indication: HIV INFECTION
     Dosage: UNK
     Route: 048
     Dates: start: 2011, end: 201910

REACTIONS (8)
  - Osteoporotic fracture [Unknown]
  - Tooth loss [Unknown]
  - Pain [Unknown]
  - Bone density decreased [Unknown]
  - Anxiety [Unknown]
  - Anhedonia [Unknown]
  - Emotional distress [Unknown]
  - Economic problem [Unknown]
